FAERS Safety Report 8347859-3 (Version None)
Quarter: 2012Q2

REPORT INFORMATION
  Report Type: 
  Country: None (occurrence: None)
  Receive Date: 20120507
  Receipt Date: 20120425
  Transmission Date: 20120825
  Serious: Yes (Hospitalization)
  Sender: FDA-Public Use
  Company Number: USA/FRA/12/0024129

PATIENT
  Age: 76 Year
  Sex: Female

DRUGS (7)
  1. INSULIN ASPART  30 (INSULIN ASPART) [Concomitant]
  2. ATENOLOL [Concomitant]
  3. ACETAMINOPHEN [Concomitant]
  4. RAMIPRIL [Concomitant]
  5. PANTOPRAZOLE SODIUM DR TABLETS [Concomitant]
  6. CLOPIDEGREL [Suspect]
     Indication: ANAEMIA
  7. LORAZEPAM [Concomitant]

REACTIONS (3)
  - TRANSIENT ISCHAEMIC ATTACK [None]
  - PULMONARY EMBOLISM [None]
  - PANCREATITIS ACUTE [None]
